FAERS Safety Report 20027968 (Version 1)
Quarter: 2021Q4

REPORT INFORMATION
  Report Type: Spontaneous
  Country: JP (occurrence: JP)
  Receive Date: 20211103
  Receipt Date: 20211103
  Transmission Date: 20220303
  Serious: Yes (Hospitalization, Other)
  Sender: FDA-Public Use
  Company Number: JP-PFIZER INC-2020467005

PATIENT
  Age: 4 Decade
  Sex: Male
  Weight: 44.1 kg

DRUGS (1)
  1. METHOTREXATE [Suspect]
     Active Substance: METHOTREXATE
     Indication: Rheumatoid arthritis
     Dosage: REPEATING TAKING MTX 6 MG ONCE DAILY FOR 13 CONSECUTIVE DAYS AND
     Route: 048

REACTIONS (9)
  - Overdose [Unknown]
  - Mucocutaneous disorder [Recovered/Resolved]
  - Inappropriate schedule of product administration [Unknown]
  - Hypophagia [Recovered/Resolved]
  - Stomatitis [Recovered/Resolved]
  - Product communication issue [Unknown]
  - Weight decreased [Recovered/Resolved]
  - Dehydration [Recovered/Resolved]
  - Myelosuppression [Recovered/Resolved]
